FAERS Safety Report 4382024-6 (Version None)
Quarter: 2004Q2

REPORT INFORMATION
  Report Type: 
  Country: None (occurrence: None)
  Receive Date: 20040603
  Receipt Date: 20030819
  Transmission Date: 20050107
  Serious: Yes (Life-Threatening, Other)
  Sender: FDA-Public Use
  Company Number: 200314455US

PATIENT
  Sex: Female

DRUGS (3)
  1. LOVENOX [Suspect]
     Indication: HYPERCOAGULATION
     Dosage: 30 MG Q12H
  2. LOVENOX [Suspect]
     Indication: HYPERCOAGULATION
     Dosage: 30 MG Q12H
     Dates: start: 20030429
  3. IMMUNE GLOBULIN INTRAVENOUS (HUMAN) [Concomitant]

REACTIONS (1)
  - POST PROCEDURAL HAEMORRHAGE [None]
